FAERS Safety Report 21158567 (Version 1)
Quarter: 2022Q3

REPORT INFORMATION
  Report Type: Spontaneous
  Country: DK (occurrence: None)
  Receive Date: 20220801
  Receipt Date: 20220801
  Transmission Date: 20221026
  Serious: Yes (Hospitalization)
  Sender: FDA-Public Use
  Company Number: DK-Sloan Pharma SARL-SLP202106-001054

PATIENT
  Age: 21 Year
  Sex: Female
  Weight: 59 kg

DRUGS (5)
  1. NEUROBLOC [Suspect]
     Active Substance: RIMABOTULINUMTOXINB
     Indication: Hyperhidrosis
     Dosage: 375U PR AXIL
     Route: 058
     Dates: start: 20210324, end: 20210324
  2. NEUROBLOC [Suspect]
     Active Substance: RIMABOTULINUMTOXINB
     Dosage: 425U PR HAND
     Route: 058
     Dates: start: 20210324, end: 20210324
  3. DYSPORT [Suspect]
     Active Substance: ABOBOTULINUMTOXINA
     Indication: Hyperhidrosis
     Dosage: 100U PR AXIL
     Route: 058
     Dates: start: 20210324, end: 20210324
  4. DYSPORT [Suspect]
     Active Substance: ABOBOTULINUMTOXINA
     Dosage: 200U PR HAND
     Route: 058
     Dates: start: 20210324, end: 20210324
  5. ALFENTANIL HYDROCHLORIDE [Concomitant]
     Active Substance: ALFENTANIL HYDROCHLORIDE
     Indication: Pain
     Dosage: NOT PROVIDED
     Dates: start: 20210324, end: 20210324

REACTIONS (11)
  - Tachycardia [Recovered/Resolved]
  - Nausea [Recovered/Resolved]
  - Palpitations [Recovered/Resolved]
  - Fatigue [Not Recovered/Not Resolved]
  - Dizziness [Recovered/Resolved]
  - Influenza like illness [Recovered/Resolved]
  - Dyspnoea [Recovered/Resolved]
  - Dyspnoea exertional [Not Recovered/Not Resolved]
  - Muscular weakness [Not Recovered/Not Resolved]
  - Headache [Recovered/Resolved]
  - Off label use [Unknown]

NARRATIVE: CASE EVENT DATE: 20210324
